FAERS Safety Report 5846499-5 (Version None)
Quarter: 2008Q3

REPORT INFORMATION
  Report Type: 
  Country: None (occurrence: None)
  Receive Date: 20080815
  Receipt Date: 20080806
  Transmission Date: 20090109
  Serious: Yes (Hospitalization)
  Sender: FDA-Public Use
  Company Number: DE-BRISTOL-MYERS SQUIBB COMPANY-14298194

PATIENT
  Age: 75 Year
  Sex: Male

DRUGS (2)
  1. CETUXIMAB [Suspect]
     Indication: ADENOCARCINOMA PANCREAS
     Dosage: FIRST INFUSION: 02-MAY-2007 MOST RECENT INFUSION: 30-MAY-2007
     Route: 042
     Dates: start: 20070502, end: 20070530
  2. GEMCITABINE [Suspect]
     Indication: ADENOCARCINOMA PANCREAS
     Dosage: FIRST INFUSION: 02-MAY-2007 MOST RECENT INFUSION: 30-MAY-2007
     Route: 042
     Dates: start: 20070502, end: 20070530

REACTIONS (3)
  - CATHETER RELATED INFECTION [None]
  - HOSPITALISATION [None]
  - IMPAIRED HEALING [None]
